FAERS Safety Report 5775072-2 (Version None)
Quarter: 2008Q2

REPORT INFORMATION
  Report Type: 
  Country: None (occurrence: None)
  Receive Date: 20080617
  Receipt Date: 20080609
  Transmission Date: 20081010
  Serious: Yes (Death)
  Sender: FDA-Public Use
  Company Number: IT-JNJFOC-20080504583

PATIENT
  Sex: Female

DRUGS (7)
  1. REOPRO [Suspect]
     Indication: MYOCARDIAL INFARCTION
     Dosage: BOLUS
     Route: 042
  2. HEPARIN [Concomitant]
     Dosage: BOLUS
     Route: 042
  3. FLECTADOL [Concomitant]
     Dosage: CONTINUOUS INFUSION
  4. MORPHINE [Concomitant]
  5. PLASIL [Concomitant]
  6. ATROPINE [Concomitant]
  7. ADRENALINE [Concomitant]

REACTIONS (3)
  - CARDIO-RESPIRATORY ARREST [None]
  - PULMONARY ALVEOLAR HAEMORRHAGE [None]
  - VENTRICULAR FIBRILLATION [None]
